FAERS Safety Report 6026967-6 (Version None)
Quarter: 2009Q1

REPORT INFORMATION
  Report Type: 
  Country: None (occurrence: None)
  Receive Date: 20090105
  Receipt Date: 20081226
  Transmission Date: 20090719
  Serious: Yes (Hospitalization)
  Sender: FDA-Public Use
  Company Number: PHHY2008JP33085

PATIENT
  Age: 68 Year
  Sex: Male

DRUGS (4)
  1. FAMCICLOVIR [Suspect]
     Indication: HERPES ZOSTER
     Dosage: UNK
     Route: 048
     Dates: start: 20081113, end: 20081119
  2. ENALAPRIL MALEATE [Concomitant]
     Indication: HYPERTENSION
  3. GLIBENCLAMIDE [Concomitant]
     Indication: DIABETES MELLITUS
  4. METFORMIN HYDROCHLORIDE [Concomitant]
     Indication: DIABETES MELLITUS

REACTIONS (3)
  - DIZZINESS [None]
  - HYPONATRAEMIA [None]
  - NAUSEA [None]
